FAERS Safety Report 9423546 (Version 1)
Quarter: 2013Q3

REPORT INFORMATION
  Report Type: Spontaneous
  Country: JP (occurrence: JP)
  Receive Date: 20130726
  Receipt Date: 20130726
  Transmission Date: 20140515
  Serious: Yes (Life-Threatening, Other)
  Sender: FDA-Public Use
  Company Number: JP-009507513-00062798

PATIENT
  Age: 21 Day
  Sex: Female
  Weight: .74 kg

DRUGS (8)
  1. INDOCIN I.V. [Suspect]
     Indication: PATENT DUCTUS ARTERIOSUS
     Dosage: 120 ?G, QD
     Route: 042
     Dates: start: 20000614
  2. AMPICILLIN [Concomitant]
     Dosage: 36 MG, QD
     Dates: start: 20000605, end: 20000618
  3. CEFTAZIDIME [Concomitant]
     Dosage: 36 MG, QD
     Dates: start: 20000605, end: 20000612
  4. CEFTAZIDIME [Concomitant]
     Dosage: 60 MG, QD
     Dates: start: 20000619, end: 20000624
  5. MINOCYCLINE HYDROCHLORIDE [Concomitant]
     Dosage: 3 MG, QD
     Dates: start: 20000619, end: 20000624
  6. NAFAMOSTAT MESYLATE [Concomitant]
     Dosage: 106 MG, QD
     Dates: start: 20000605, end: 20000626
  7. BLOOD CELLS, RED [Concomitant]
     Dates: start: 20000608, end: 20000608
  8. BLOOD CELLS, RED [Concomitant]
     Dosage: UNK
     Dates: start: 20000616, end: 20000617

REACTIONS (2)
  - Ejection fraction decreased [Recovered/Resolved]
  - Disseminated intravascular coagulation [Recovered/Resolved]
